FAERS Safety Report 4727415-6 (Version None)
Quarter: 2005Q3

REPORT INFORMATION
  Report Type: 
  Country: None (occurrence: None)
  Receive Date: 20050726
  Receipt Date: 20050713
  Transmission Date: 20060218
  Serious: Yes (Hospitalization, Other)
  Sender: FDA-Public Use
  Company Number: 2005004881

PATIENT
  Age: 50 Year
  Sex: Female

DRUGS (5)
  1. GEODON [Suspect]
     Indication: ILL-DEFINED DISORDER
  2. METHADONE (METHADONE) [Suspect]
     Indication: ILL-DEFINED DISORDER
  3. ALL OTHER THERAPEUTIC PRODUCTS (ALL OTHER THERAPEUTIC PRODUCTS) [Suspect]
     Indication: ILL-DEFINED DISORDER
  4. DURAGESIC-100 [Suspect]
     Indication: ILL-DEFINED DISORDER
  5. FENTANYL [Suspect]
     Indication: ILL-DEFINED DISORDER

REACTIONS (15)
  - AGGRESSION [None]
  - AGITATION [None]
  - ALKALOSIS [None]
  - ASTHMA [None]
  - CARDIAC ARREST [None]
  - ELECTROCARDIOGRAM QT PROLONGED [None]
  - HALLUCINATION [None]
  - HYPERKALAEMIA [None]
  - HYPOMAGNESAEMIA [None]
  - MENTAL STATUS CHANGES [None]
  - OVERDOSE [None]
  - PSYCHOTIC DISORDER [None]
  - RHABDOMYOLYSIS [None]
  - TORSADE DE POINTES [None]
  - VENTRICULAR TACHYCARDIA [None]
